FAERS Safety Report 25209860 (Version 2)
Quarter: 2025Q3

REPORT INFORMATION
  Report Type: Spontaneous
  Country: US (occurrence: US)
  Receive Date: 20250417
  Receipt Date: 20250731
  Transmission Date: 20251020
  Serious: No
  Sender: IPSEN BIOPHARMACEUTICALS, INC.
  Company Number: US-IPSEN Group, Research and Development-2025-08699

PATIENT
  Sex: Female

DRUGS (2)
  1. SOMATULINE DEPOT [Suspect]
     Active Substance: LANREOTIDE ACETATE
     Indication: Product used for unknown indication
     Dosage: 120MG/0.5ML, INJECT 1 SYRINGE UNDER THE SKIN, ONCE MONTHLY AS DIRECTED
     Dates: start: 20240403
  2. BENADRYL ITCH STOPPING CREAM [Concomitant]

REACTIONS (6)
  - Alopecia [Not Recovered/Not Resolved]
  - Cough [Not Recovered/Not Resolved]
  - Weight increased [Unknown]
  - Diarrhoea [Unknown]
  - Malaise [Unknown]
  - Product dose omission issue [Unknown]
